FAERS Safety Report 8905973 (Version 2)
Quarter: 2013Q1

REPORT INFORMATION
  Report Type: Spontaneous
  Country: US (occurrence: US)
  Receive Date: 20121109
  Receipt Date: 20130308
  Transmission Date: 20140127
  Serious: Yes (Death)
  Sender: FDA-Public Use
  Company Number: US-GLAXOSMITHKLINE-A0999586A

PATIENT
  Age: 63 Year
  Sex: Male

DRUGS (5)
  1. ADVAIR [Suspect]
     Indication: CHRONIC OBSTRUCTIVE PULMONARY DISEASE
     Route: 055
  2. VENTOLIN [Suspect]
     Indication: CHRONIC OBSTRUCTIVE PULMONARY DISEASE
     Route: 055
  3. SINGULAIR [Concomitant]
  4. THEOPHYLLINE [Concomitant]
  5. ALBUTEROL/IPRATROPIUM [Concomitant]

REACTIONS (3)
  - Death [Fatal]
  - Dyspnoea [Unknown]
  - Treatment noncompliance [Unknown]
